FAERS Safety Report 5485329-0 (Version None)
Quarter: 2007Q4

REPORT INFORMATION
  Report Type: 
  Country: None (occurrence: None)
  Receive Date: 20071010
  Receipt Date: 20071010
  Transmission Date: 20080405
  Serious: Yes (Life-Threatening)
  Sender: FDA-Public Use
  Company Number: None

PATIENT
  Age: 54 Year
  Sex: Female
  Weight: 90.7194 kg

DRUGS (2)
  1. REQUIP [Suspect]
     Indication: RESTLESS LEGS SYNDROME
     Dosage: 3 PILLS  NIGHTLY  PO
     Route: 048
     Dates: start: 20061223, end: 20070710
  2. MIRAPEX [Suspect]
     Indication: RESTLESS LEGS SYNDROME
     Dosage: 1 PILL  NIGHTLY  PO
     Route: 048
     Dates: start: 20070820, end: 20070828

REACTIONS (10)
  - BLEPHAROSPASM [None]
  - CONDITION AGGRAVATED [None]
  - HEADACHE [None]
  - HYPERTENSION [None]
  - LOSS OF CONSCIOUSNESS [None]
  - MUSCLE SPASMS [None]
  - PANIC REACTION [None]
  - PHOBIA OF DRIVING [None]
  - ROAD TRAFFIC ACCIDENT [None]
  - SLEEP ATTACKS [None]
